FAERS Safety Report 5049836-7 (Version None)
Quarter: 2006Q2

REPORT INFORMATION
  Report Type: 
  Country: None (occurrence: None)
  Receive Date: 20060614
  Receipt Date: 20060419
  Transmission Date: 20061013
  Serious: Yes (Other)
  Sender: FDA-Public Use
  Company Number: 445227

PATIENT
  Age: 73 Year
  Sex: Female
  Weight: 68.5 kg

DRUGS (2)
  1. BONIVA [Suspect]
     Indication: OSTEOPOROSIS
     Dosage: 1 PER MONTH ORAL
     Route: 048
     Dates: start: 20060401
  2. VITAMINS NOS (MULTIVITAMIN NOS) [Concomitant]

REACTIONS (5)
  - ABDOMINAL PAIN UPPER [None]
  - CHANGE OF BOWEL HABIT [None]
  - FLATULENCE [None]
  - HEADACHE [None]
  - NAUSEA [None]
